FAERS Safety Report 24466262 (Version 1)
Quarter: 2024Q4

REPORT INFORMATION
  Report Type: Report from Study
  Country: US (occurrence: US)
  Receive Date: 20241018
  Receipt Date: 20241018
  Transmission Date: 20250114
  Serious: No
  Sender: ROCHE
  Company Number: US-ROCHE-3526988

PATIENT
  Age: 53 Year
  Sex: Female
  Weight: 67.13 kg

DRUGS (9)
  1. XOLAIR [Suspect]
     Active Substance: OMALIZUMAB
     Indication: Urticaria
     Route: 058
  2. XOLAIR [Suspect]
     Active Substance: OMALIZUMAB
     Indication: Idiopathic urticaria
  3. BENADRYL ALLERGY [Concomitant]
     Active Substance: DIPHENHYDRAMINE HYDROCHLORIDE
     Route: 048
  4. PREDNISONE [Concomitant]
     Active Substance: PREDNISONE
     Route: 048
  5. ZYRTEC [Concomitant]
     Active Substance: CETIRIZINE HYDROCHLORIDE
     Indication: Angioedema
     Dosage: 2 TABS AT AM
     Route: 048
  6. PEPCID [Concomitant]
     Active Substance: FAMOTIDINE
     Indication: Angioedema
  7. MONTELUKAST [Concomitant]
     Active Substance: MONTELUKAST
  8. DESVENLAFAXINE SUCCINATE [Concomitant]
     Active Substance: DESVENLAFAXINE SUCCINATE
     Dosage: EXTENDED RELEASE, TAKE ONE EVERY MORNING
     Route: 048
  9. DIAZEPAM [Concomitant]
     Active Substance: DIAZEPAM
     Route: 048

REACTIONS (11)
  - Vasomotor rhinitis [Unknown]
  - Sleep disorder [Unknown]
  - Poor quality sleep [Unknown]
  - Periorbital swelling [Unknown]
  - Urticaria [Unknown]
  - Stress [Unknown]
  - Swollen tongue [Unknown]
  - Lip swelling [Unknown]
  - Mast cell activation syndrome [Unknown]
  - Pyrexia [Unknown]
  - Rhinitis [Unknown]
